FAERS Safety Report 9484837 (Version 2)
Quarter: 2013Q3

REPORT INFORMATION
  Report Type: Spontaneous
  Country: IT (occurrence: IT)
  Receive Date: 20130828
  Receipt Date: 20130913
  Transmission Date: 20140515
  Serious: Yes (Life-Threatening)
  Sender: FDA-Public Use
  Company Number: IT-GLAXOSMITHKLINE-B0918183A

PATIENT
  Age: 82 Year
  Sex: Female

DRUGS (9)
  1. RYTMONORM [Suspect]
     Indication: ATRIAL FIBRILLATION
     Dosage: 150MG PER DAY
     Route: 048
     Dates: start: 20110101, end: 20130530
  2. ATENOLOL [Suspect]
     Indication: HYPERTENSION
     Dosage: 100MG PER DAY
     Route: 048
     Dates: start: 20130101, end: 20130530
  3. ENALAPRIL [Concomitant]
     Indication: HYPERTENSION
  4. CITALOPRAM [Concomitant]
  5. ALPRAZOLAM [Concomitant]
  6. ARIXTRA [Concomitant]
  7. ANTRA [Concomitant]
  8. TACHIDOL [Concomitant]
  9. RILUTEK [Concomitant]
     Indication: AMYOTROPHIC LATERAL SCLEROSIS

REACTIONS (2)
  - Malaise [Recovering/Resolving]
  - Bradycardia [Recovering/Resolving]
